FAERS Safety Report 9927637 (Version 1)
Quarter: 2014Q1

REPORT INFORMATION
  Report Type: Spontaneous
  Country: US (occurrence: US)
  Receive Date: 20140227
  Receipt Date: 20140227
  Transmission Date: 20141002
  Serious: No
  Sender: FDA-Public Use
  Company Number: US-BIOGENIDEC-2014BI017940

PATIENT
  Age: 32 Year
  Sex: Male

DRUGS (1)
  1. TYSABRI [Suspect]
     Indication: MULTIPLE SCLEROSIS
     Route: 042
     Dates: start: 20120417, end: 20131127

REACTIONS (6)
  - Sleep apnoea syndrome [Not Recovered/Not Resolved]
  - Swollen tongue [Not Recovered/Not Resolved]
  - Gait disturbance [Not Recovered/Not Resolved]
  - Loss of control of legs [Recovered/Resolved]
  - Fall [Recovered/Resolved]
  - Nuclear magnetic resonance imaging abnormal [Unknown]
